APPROVED DRUG PRODUCT: MEFLOQUINE HYDROCHLORIDE
Active Ingredient: MEFLOQUINE HYDROCHLORIDE
Strength: 250MG
Dosage Form/Route: TABLET;ORAL
Application: A076523 | Product #001
Applicant: HIKMA PHARMACEUTICALS USA INC
Approved: Oct 1, 2004 | RLD: No | RS: No | Type: DISCN